FAERS Safety Report 10035689 (Version 1)
Quarter: 2014Q1

REPORT INFORMATION
  Report Type: Spontaneous
  Country: US (occurrence: US)
  Receive Date: 20140325
  Receipt Date: 20140325
  Transmission Date: 20141002
  Serious: Yes (Hospitalization)
  Sender: FDA-Public Use
  Company Number: US-GLAXOSMITHKLINE-A1065417A

PATIENT
  Age: 77 Year
  Sex: Male

DRUGS (4)
  1. ADVAIR [Suspect]
     Indication: CHRONIC OBSTRUCTIVE PULMONARY DISEASE
     Dosage: 1PUFF PER DAY
     Route: 055
     Dates: start: 2008
  2. SPIRIVA [Concomitant]
  3. ATORVASTATIN [Concomitant]
  4. LOSARTAN [Concomitant]

REACTIONS (2)
  - Upper respiratory tract infection [Recovering/Resolving]
  - Drug administration error [Unknown]
